FAERS Safety Report 7319339-5 (Version None)
Quarter: 2011Q1

REPORT INFORMATION
  Report Type: 
  Country: None (occurrence: None)
  Receive Date: 20110228
  Receipt Date: 20100205
  Transmission Date: 20110831
  Serious: No
  Sender: FDA-Public Use
  Company Number: A0843234A

PATIENT
  Age: 42 Year
  Sex: Female

DRUGS (4)
  1. LEXAPRO [Concomitant]
  2. DICLOFENAC [Concomitant]
  3. LAMICTAL [Suspect]
     Indication: BIPOLAR DISORDER
     Dosage: 300MG AT NIGHT
     Route: 048
     Dates: start: 20090101
  4. ADDERALL XR 10 [Concomitant]

REACTIONS (4)
  - DYSKINESIA [None]
  - HEADACHE [None]
  - SOMNOLENCE [None]
  - NAUSEA [None]
